FAERS Safety Report 7577385-0 (Version None)
Quarter: 2011Q2

REPORT INFORMATION
  Report Type: 
  Country: None (occurrence: None)
  Receive Date: 20110628
  Receipt Date: 20110622
  Transmission Date: 20111010
  Serious: Yes (Death, Hospitalization)
  Sender: FDA-Public Use
  Company Number: US-ACTELION-A-NJ2011-50745

PATIENT

DRUGS (5)
  1. EPOPROSTENOL SODIUM [Suspect]
     Dosage: UNK
     Route: 041
     Dates: start: 20110428, end: 20110501
  2. SILDENAFIL CITRATE [Concomitant]
  3. EPOPROSTENOL SODIUM [Suspect]
     Indication: PULMONARY ARTERIAL HYPERTENSION
     Dosage: 18 NG/KG, PER MIN
     Route: 041
     Dates: start: 20110610, end: 20110621
  4. FLOLAN [Concomitant]
  5. CALCIUM CHANNEL BLOCKERS [Concomitant]

REACTIONS (3)
  - DEATH [None]
  - HEART RATE INCREASED [None]
  - URINARY TRACT INFECTION [None]
